FAERS Safety Report 12804305 (Version 1)
Quarter: 2016Q4

REPORT INFORMATION
  Report Type: Spontaneous
  Country: FR (occurrence: FR)
  Receive Date: 20161003
  Receipt Date: 20161003
  Transmission Date: 20170207
  Serious: Yes (Other)
  Sender: FDA-Public Use
  Company Number: FR-PFIZER INC-2016462279

PATIENT
  Age: 14 Year
  Sex: Female
  Weight: 44 kg

DRUGS (3)
  1. METHOTREXATE SODIUM. [Suspect]
     Active Substance: METHOTREXATE SODIUM
     Indication: OSTEOSARCOMA
  2. ETOPOSIDE. [Concomitant]
     Active Substance: ETOPOSIDE
     Indication: OSTEOSARCOMA
  3. IFOSFAMIDE. [Concomitant]
     Active Substance: IFOSFAMIDE
     Indication: OSTEOSARCOMA

REACTIONS (2)
  - White matter lesion [Unknown]
  - Affective disorder [Unknown]

NARRATIVE: CASE EVENT DATE: 20160502
